FAERS Safety Report 8436400-2 (Version None)
Quarter: 2012Q2

REPORT INFORMATION
  Report Type: 
  Country: None (occurrence: None)
  Receive Date: 20120614
  Receipt Date: 20110408
  Transmission Date: 20120825
  Serious: No
  Sender: FDA-Public Use
  Company Number: US-NOVEN-11US002224

PATIENT
  Sex: Male
  Weight: 18.141 kg

DRUGS (2)
  1. DAYTRANA [Suspect]
     Indication: ATTENTION DEFICIT/HYPERACTIVITY DISORDER
     Dosage: 10 MG, QD
     Route: 062
     Dates: start: 20110322
  2. AMOXICILLIN [Concomitant]
     Indication: STREPTOCOCCAL INFECTION
     Dosage: 1 TSP, QD
     Route: 048
     Dates: start: 20110405

REACTIONS (6)
  - PRURITUS GENERALISED [None]
  - APPLICATION SITE ERYTHEMA [None]
  - DERMATITIS CONTACT [None]
  - PRODUCT QUALITY ISSUE [None]
  - PHARYNGITIS STREPTOCOCCAL [None]
  - DRUG ADMINISTRATION ERROR [None]
